FAERS Safety Report 5760324-2 (Version None)
Quarter: 2008Q2

REPORT INFORMATION
  Report Type: 
  Country: None (occurrence: None)
  Receive Date: 20080602
  Receipt Date: 20080508
  Transmission Date: 20081010
  Serious: Yes (Death)
  Sender: FDA-Public Use
  Company Number: 1-16017802

PATIENT
  Sex: Female

DRUGS (11)
  1. FENTANYL [Suspect]
     Indication: CHEST PAIN
     Dosage: TRANSDERMAL
     Route: 062
     Dates: start: 20080229, end: 20080303
  2. FENTANYL [Suspect]
  3. LORTAB [Concomitant]
  4. PREMARIN [Concomitant]
  5. VYTORIN [Concomitant]
  6. PLAVIX [Concomitant]
  7. ATENOLOL [Concomitant]
  8. LISINOPRIL [Concomitant]
  9. TOPAMAX [Concomitant]
  10. TRICOR [Concomitant]
  11. OTHERS (NOT SPECIFIED) [Concomitant]

REACTIONS (4)
  - RESPIRATORY RATE DECREASED [None]
  - SNORING [None]
  - SOMNOLENCE [None]
  - SUDDEN DEATH [None]
